FAERS Safety Report 17921250 (Version 6)
Quarter: 2020Q3

REPORT INFORMATION
  Report Type: Spontaneous
  Country: US (occurrence: US)
  Receive Date: 20200622
  Receipt Date: 20200824
  Transmission Date: 20201103
  Serious: Yes (Other)
  Sender: FDA-Public Use
  Company Number: US-BEH-2020118477

PATIENT
  Sex: Female

DRUGS (7)
  1. HUMATE?P [Suspect]
     Active Substance: HUMAN COAGULATION FACTOR VIII/VON WILLEBRAND FACTOR COMPLEX
     Dosage: 1000 INTERNATIONAL UNIT, TOT
     Route: 065
     Dates: start: 20200420
  2. FOLIC ACID. [Concomitant]
     Active Substance: FOLIC ACID
  3. HUMATE?P [Suspect]
     Active Substance: HUMAN COAGULATION FACTOR VIII/VON WILLEBRAND FACTOR COMPLEX
     Dosage: 1000 INTERNATIONAL UNIT, TOT
     Route: 065
     Dates: start: 20200420
  4. HUMATE?P [Suspect]
     Active Substance: HUMAN COAGULATION FACTOR VIII/VON WILLEBRAND FACTOR COMPLEX
     Indication: VON WILLEBRAND^S DISEASE
     Dosage: UNK, QOW
     Route: 065
     Dates: start: 2020
  5. HUMATE?P [Suspect]
     Active Substance: HUMAN COAGULATION FACTOR VIII/VON WILLEBRAND FACTOR COMPLEX
     Indication: VON WILLEBRAND^S DISEASE
     Dosage: UNK, QOW
     Route: 065
     Dates: start: 2020
  6. HUMATE?P [Suspect]
     Active Substance: HUMAN COAGULATION FACTOR VIII/VON WILLEBRAND FACTOR COMPLEX
     Dosage: 1000 INTERNATIONAL UNIT, TOT
     Route: 065
     Dates: start: 20200402
  7. HUMATE?P [Suspect]
     Active Substance: HUMAN COAGULATION FACTOR VIII/VON WILLEBRAND FACTOR COMPLEX
     Dosage: 1000 INTERNATIONAL UNIT, TOT
     Route: 065
     Dates: start: 20200402

REACTIONS (5)
  - Headache [Unknown]
  - Dyspnoea [Unknown]
  - Alopecia [Not Recovered/Not Resolved]
  - Paraesthesia [Unknown]
  - Irritability [Unknown]

NARRATIVE: CASE EVENT DATE: 2020
